FAERS Safety Report 4867303-8 (Version None)
Quarter: 2005Q4

REPORT INFORMATION
  Report Type: 
  Country: None (occurrence: None)
  Receive Date: 20051228
  Receipt Date: 19991202
  Transmission Date: 20060501
  Serious: Yes (Death, Life-Threatening, Hospitalization)
  Sender: FDA-Public Use
  Company Number: US-ROCHE-222345

PATIENT
  Age: 61 Year
  Sex: Male
  Weight: 67.6 kg

DRUGS (16)
  1. MYCOPHENOLATE MOFETIL [Suspect]
     Route: 048
     Dates: start: 19991105
  2. DACLIZUMAB [Suspect]
     Route: 042
     Dates: start: 19991105
  3. GANCICLOVIR [Concomitant]
     Dates: start: 19991115
  4. BACTRIM [Concomitant]
     Dates: start: 19991115
  5. NEORAL [Suspect]
     Route: 065
     Dates: start: 19991106
  6. PREDNISONE 50MG TAB [Suspect]
     Route: 065
     Dates: start: 19991105
  7. NEURONTIN [Concomitant]
     Dates: start: 19991215
  8. FOLIC ACID [Concomitant]
     Dates: start: 19991115
  9. PYRIDOXINE HCL [Concomitant]
     Dates: start: 19991215
  10. THIAMINE [Concomitant]
     Dates: start: 19991215
  11. MULTIVITAMIN [Concomitant]
     Dates: start: 19991115
  12. OMEPRAZOLE [Concomitant]
     Dates: start: 19991115
  13. CELEXA [Concomitant]
     Dates: start: 19991215
  14. ZOCOR [Concomitant]
     Dates: start: 19991214
  15. DIFLUCAN [Concomitant]
     Dates: start: 19991224
  16. FENTANYL [Concomitant]
     Dates: start: 19991222

REACTIONS (5)
  - ATELECTASIS [None]
  - GENERAL PHYSICAL HEALTH DETERIORATION [None]
  - HYPOTENSION [None]
  - RESPIRATORY FAILURE [None]
  - SQUAMOUS CELL CARCINOMA [None]
